FAERS Safety Report 4962569-8 (Version None)
Quarter: 2006Q2

REPORT INFORMATION
  Report Type: 
  Country: None (occurrence: None)
  Receive Date: 20060404
  Receipt Date: 20060125
  Transmission Date: 20061013
  Serious: Yes (Death)
  Sender: FDA-Public Use
  Company Number: US-NOVOPROD-250332

PATIENT
  Age: 6 Year
  Sex: Male
  Weight: 24 kg

DRUGS (2)
  1. SYNTHROID [Concomitant]
     Indication: HYPOTHYROIDISM
     Dosage: 37.5 MG, QD
     Route: 048
  2. NORDITROPIN [Suspect]
     Indication: GROWTH HORMONE DEFICIENCY
     Dosage: .6 MG, SIX DAYS A WEEK
     Route: 058
     Dates: start: 20040917

REACTIONS (4)
  - APNOEA [None]
  - CARDIAC ARREST [None]
  - PALLOR [None]
  - VOMITING [None]
